FAERS Safety Report 11106305 (Version 2)
Quarter: 2015Q2

REPORT INFORMATION
  Report Type: Spontaneous
  Country: AU (occurrence: AU)
  Receive Date: 20150512
  Receipt Date: 20150518
  Transmission Date: 20150821
  Serious: Yes (Hospitalization)
  Sender: FDA-Public Use
  Company Number: AU-PFIZER INC-2015157070

PATIENT
  Age: 55 Year
  Sex: Male

DRUGS (1)
  1. AMIODARONE HCL [Suspect]
     Active Substance: AMIODARONE HYDROCHLORIDE
     Indication: EXTRASYSTOLES
     Dosage: 200 MG, 2X/DAY
     Route: 065
     Dates: start: 2008, end: 2012

REACTIONS (5)
  - Syncope [Unknown]
  - Coronary artery stenosis [Recovering/Resolving]
  - Ventricular fibrillation [Recovered/Resolved]
  - Myocardial infarction [Unknown]
  - Hyperthyroidism [Recovering/Resolving]

NARRATIVE: CASE EVENT DATE: 2012
